FAERS Safety Report 4674566-0 (Version None)
Quarter: 2005Q2

REPORT INFORMATION
  Report Type: 
  Country: None (occurrence: None)
  Receive Date: 20050524
  Receipt Date: 20050510
  Transmission Date: 20051028
  Serious: Yes (Other)
  Sender: FDA-Public Use
  Company Number: USA050496279

PATIENT
  Age: 79 Year
  Sex: Female

DRUGS (2)
  1. EVISTA [Suspect]
     Dates: start: 20040101
  2. CALCIUM GLUCONATE [Concomitant]

REACTIONS (2)
  - ARTHROPATHY [None]
  - SPINAL FRACTURE [None]
